FAERS Safety Report 5307036-7 (Version None)
Quarter: 2007Q2

REPORT INFORMATION
  Report Type: 
  Country: None (occurrence: None)
  Receive Date: 20070420
  Receipt Date: 20070420
  Transmission Date: 20071010
  Serious: Yes (Other)
  Sender: FDA-Public Use
  Company Number: None

PATIENT
  Sex: Female
  Weight: 78.9259 kg

DRUGS (8)
  1. HYDROXYCHLOROQUINE SULFATE [Suspect]
     Indication: SYSTEMIC LUPUS ERYTHEMATOSUS
     Dosage: 200MG 2 Q D
     Dates: start: 19860101, end: 20060101
  2. VYTORIN [Concomitant]
  3. METOPROLOL SUCCINATE [Concomitant]
  4. LISINOPRIL [Concomitant]
  5. PRINIVIL [Concomitant]
  6. NEXIUM [Concomitant]
  7. TRAZODONE HCL [Concomitant]
  8. ZOLOFT [Concomitant]

REACTIONS (2)
  - NIGHT BLINDNESS [None]
  - SCOTOMA [None]
